FAERS Safety Report 5551527-0 (Version None)
Quarter: 2007Q4

REPORT INFORMATION
  Report Type: 
  Country: None (occurrence: None)
  Receive Date: 20071129
  Receipt Date: 20070823
  Transmission Date: 20080405
  Serious: Yes (Hospitalization, Other)
  Sender: FDA-Public Use
  Company Number: US200702005595

PATIENT
  Age: 11 Year
  Sex: Female

DRUGS (4)
  1. ZYPREXA [Suspect]
     Indication: ABNORMAL BEHAVIOUR
     Dates: start: 20040701
  2. LEXAPRO [Concomitant]
  3. RISPERIDONE [Concomitant]
  4. LITHIUM CARBONATE [Concomitant]

REACTIONS (12)
  - ABNORMAL BEHAVIOUR [None]
  - AFFECTIVE DISORDER [None]
  - CHOREA [None]
  - CONVULSION [None]
  - FEAR [None]
  - HOMICIDAL IDEATION [None]
  - MALAISE [None]
  - MOOD SWINGS [None]
  - SPEECH DISORDER [None]
  - SUICIDAL IDEATION [None]
  - TREMOR [None]
  - VOMITING [None]
